FAERS Safety Report 19513851 (Version 2)
Quarter: 2021Q3

REPORT INFORMATION
  Report Type: Spontaneous
  Country: ES (occurrence: ES)
  Receive Date: 20210709
  Receipt Date: 20210921
  Transmission Date: 20211014
  Serious: Yes (Hospitalization)
  Sender: FDA-Public Use
  Company Number: ES-MYLANLABS-2021M1039696

PATIENT
  Age: 74 Year
  Sex: Male
  Weight: 76 kg

DRUGS (19)
  1. AVELUMAB [Concomitant]
     Active Substance: AVELUMAB
     Dosage: 720 MG, Q2WEEK (ONCE IN EVERY TWO WEEKS)
     Route: 042
     Dates: start: 20200722
  2. DOCETAXEL. [Suspect]
     Active Substance: DOCETAXEL
     Indication: OESOPHAGEAL CARCINOMA
     Dosage: UNK
  3. FLUOROURACIL. [Suspect]
     Active Substance: FLUOROURACIL
     Indication: OESOPHAGEAL CARCINOMA
     Dosage: UNK
     Route: 042
  4. DOCETAXEL. [Concomitant]
     Active Substance: DOCETAXEL
     Indication: GASTRIC CANCER
     Dosage: 90 MG, CYCLIC(ONCE IN EVERY TWO WEEKS)
     Route: 042
     Dates: start: 20201229
  5. METFORMINE                         /00082702/ [Concomitant]
     Active Substance: METFORMIN HYDROCHLORIDE
     Indication: DIABETES MELLITUS
     Dosage: 1000 MILLIGRAM
     Dates: start: 20040401
  6. DOCETAXEL. [Concomitant]
     Active Substance: DOCETAXEL
     Dosage: 90 MG, CYCLIC(ONCE IN EVERY TWO WEEKS)
     Route: 042
     Dates: start: 20200722
  7. OXALIPLATIN. [Concomitant]
     Active Substance: OXALIPLATIN
     Dosage: 150 MG, CYCLIC (ONCE IN EVERY TWO WEEKS)
     Route: 042
     Dates: start: 20200722
  8. AVELUMAB [Concomitant]
     Active Substance: AVELUMAB
     Indication: OESOPHAGEAL CARCINOMA
     Dosage: UNK
  9. VESOMNI [Concomitant]
     Active Substance: SOLIFENACIN\TAMSULOSIN
     Indication: BENIGN PROSTATIC HYPERPLASIA
     Dosage: 6 MILLIGRAM
     Dates: start: 20010101
  10. AVELUMAB [Concomitant]
     Active Substance: AVELUMAB
     Indication: GASTRIC CANCER
     Dosage: 720 MG, CYCLIC/ (ONCE IN EVERY TWO WEEKS)
     Route: 042
     Dates: start: 20201229
  11. CALCIUM FOLINATE [Concomitant]
     Active Substance: LEUCOVORIN CALCIUM
     Indication: GASTRIC CANCER
     Dosage: 720 MG, CYCLIC(ONCE IN EVERY TWO WEEKS)
     Route: 042
     Dates: start: 20200722
  12. CALCIUM FOLINATE [Suspect]
     Active Substance: LEUCOVORIN CALCIUM
     Indication: OESOPHAGEAL CARCINOMA
     Dosage: UNK
  13. CALCIUM FOLINATE [Concomitant]
     Active Substance: LEUCOVORIN CALCIUM
     Dosage: 720 MG, CYCLIC(ONCE IN EVERY TWO WEEKS)
     Route: 042
     Dates: start: 20201229
  14. SITAGLIPTINE [Concomitant]
     Active Substance: SITAGLIPTIN
     Indication: DIABETES MELLITUS
     Dosage: 50 MILLIGRAM
     Dates: start: 20040101
  15. IRBESARTAN. [Concomitant]
     Active Substance: IRBESARTAN
     Indication: HYPERTENSION
     Dosage: 75 MILLIGRAM
     Dates: start: 20200701
  16. FLUOROURACIL. [Suspect]
     Active Substance: FLUOROURACIL
     Indication: GASTRIC CANCER
     Dosage: 4680 MG, CYCLIC(ONCE IN EVERY TWO WEEKS)
     Route: 042
     Dates: start: 20201229
  17. FLUOROURACIL. [Suspect]
     Active Substance: FLUOROURACIL
     Dosage: 4680 MG, CYCLIC(ONCE IN EVERY TWO WEEKS)
     Route: 042
     Dates: start: 20200722
  18. OXALIPLATIN. [Suspect]
     Active Substance: OXALIPLATIN
     Indication: OESOPHAGEAL CARCINOMA
     Dosage: UNK
  19. OXALIPLATIN. [Concomitant]
     Active Substance: OXALIPLATIN
     Indication: GASTRIC CANCER
     Dosage: 150 MG, CYCLIC (ONCE IN EVERY TWO WEEKS)
     Route: 042
     Dates: start: 20201229

REACTIONS (2)
  - Pneumothorax [Recovered/Resolved]
  - Septic shock [Not Recovered/Not Resolved]

NARRATIVE: CASE EVENT DATE: 20201230
